FAERS Safety Report 8711174 (Version 3)
Quarter: 2013Q2

REPORT INFORMATION
  Report Type: Spontaneous
  Country: US (occurrence: US)
  Receive Date: 20120807
  Receipt Date: 20130501
  Transmission Date: 20140414
  Serious: Yes (Other)
  Sender: FDA-Public Use
  Company Number: US-CELGENEUS-163-21880-12080121

PATIENT
  Age: 88 Year
  Sex: Female
  Weight: 68 kg

DRUGS (4)
  1. REVLIMID [Suspect]
     Indication: PLASMA CELL MYELOMA
     Dosage: 5 MILLIGRAM
     Route: 048
     Dates: start: 20061115
  2. INJECTIONS [Concomitant]
     Indication: THROMBOSIS
     Route: 065
  3. TARCEVA [Concomitant]
     Indication: NEOPLASM MALIGNANT
     Dosage: 100 MILLIGRAM
     Route: 048
     Dates: start: 20120830
  4. ENOXAPARIN [Concomitant]
     Indication: THROMBOSIS PROPHYLAXIS
     Dosage: 80 MILLIGRAM
     Route: 058
     Dates: start: 20110826

REACTIONS (3)
  - Asthma [Unknown]
  - Deep vein thrombosis [Unknown]
  - Pulmonary embolism [Unknown]
